FAERS Safety Report 21623608 (Version 1)
Quarter: 2022Q4

REPORT INFORMATION
  Report Type: Spontaneous
  Country: DE (occurrence: DE)
  Receive Date: 20221121
  Receipt Date: 20221121
  Transmission Date: 20230112
  Serious: Yes (Hospitalization)
  Sender: FDA-Public Use
  Company Number: DE-ADRED-08487-01

PATIENT
  Age: 79 Year
  Sex: Female

DRUGS (9)
  1. IBUPROFEN [Suspect]
     Active Substance: IBUPROFEN
     Indication: Product used for unknown indication
     Dosage: UNK
     Route: 048
  2. EDOXABAN [Suspect]
     Active Substance: EDOXABAN
     Dosage: 60 MILLIGRAM, QD, 1-0-0-0
     Route: 048
  3. SIMVASTATIN [Concomitant]
     Active Substance: SIMVASTATIN
     Dosage: 20 MILLIGRAM
     Route: 048
  4. LEVOTHYROXINE SODIUM [Concomitant]
     Active Substance: LEVOTHYROXINE SODIUM
     Dosage: 125 MICROGRAM, QD, 1-0-0-0
     Route: 048
  5. CEFPODOXIME [Concomitant]
     Active Substance: CEFPODOXIME
     Dosage: 200 MILLIGRAM
     Route: 048
  6. AMLODIPINE BESYLATE [Concomitant]
     Active Substance: AMLODIPINE BESYLATE
     Dosage: 10 MILLIGRAM, QD, 1-0-0-0
     Route: 048
  7. METFORMIN [Concomitant]
     Active Substance: METFORMIN HYDROCHLORIDE
     Dosage: 1000 MILLIGRAM, BID, 1-0-1-0
     Route: 048
  8. OMEPRAZOLE [Concomitant]
     Active Substance: OMEPRAZOLE
     Dosage: 20 MILLIGRAM
     Route: 048
  9. HYDROCHLOROTHIAZIDE\RAMIPRIL [Concomitant]
     Active Substance: HYDROCHLOROTHIAZIDE\RAMIPRIL
     Dosage: UNK, BID, 25|5 MG, 0.5-0-0.5-0
     Route: 048

REACTIONS (6)
  - Shock haemorrhagic [Unknown]
  - Pallor [Unknown]
  - Anaemia [Unknown]
  - Fall [Unknown]
  - Hypotension [Unknown]
  - Gastrointestinal haemorrhage [Unknown]
